FAERS Safety Report 15682224 (Version 2)
Quarter: 2019Q1

REPORT INFORMATION
  Report Type: Spontaneous
  Country: US (occurrence: US)
  Receive Date: 20181203
  Receipt Date: 20190130
  Transmission Date: 20190417
  Serious: No
  Sender: FDA-Public Use
  Company Number: US-PFIZER INC-2018482581

PATIENT
  Sex: Female

DRUGS (4)
  1. TAXOTERE [Suspect]
     Active Substance: DOCETAXEL
     Indication: BREAST CANCER FEMALE
     Dosage: UNK, CYCLIC (NUMBER OF CYCLES: 06), EVERY THREE WEEKS
     Dates: start: 20131127, end: 20140114
  2. DOCETAXEL. [Suspect]
     Active Substance: DOCETAXEL
     Indication: BREAST CANCER FEMALE
     Dosage: UNK, CYCLIC (NUMBER OF CYCLES: 06), EVERY THREE WEEKS
     Dates: start: 20131127, end: 20140114
  3. DOCEFREZ [Suspect]
     Active Substance: DOCETAXEL ANHYDROUS
     Indication: BREAST CANCER FEMALE
     Dosage: UNK, CYCLIC (NUMBER OF CYCLES: 06), EVERY THREE WEEKS
     Dates: start: 20131127, end: 20140114
  4. DOCETAXEL. [Suspect]
     Active Substance: DOCETAXEL
     Indication: BREAST CANCER FEMALE
     Dosage: UNK, CYCLIC (NUMBER OF CYCLES: 06), EVERY THREE WEEKS
     Dates: start: 20131127, end: 20140114

REACTIONS (1)
  - Alopecia [Not Recovered/Not Resolved]
